FAERS Safety Report 5894782-X (Version None)
Quarter: 2008Q3

REPORT INFORMATION
  Report Type: 
  Country: None (occurrence: None)
  Receive Date: 20080924
  Receipt Date: 20080618
  Transmission Date: 20090109
  Serious: No
  Sender: FDA-Public Use
  Company Number: US-ASTRAZENECA-2008UW12239

PATIENT
  Sex: Female
  Weight: 63.5 kg

DRUGS (4)
  1. SEROQUEL [Suspect]
     Indication: POST-TRAUMATIC STRESS DISORDER
     Route: 048
  2. SEROQUEL [Suspect]
     Indication: ANXIETY
     Route: 048
  3. XANAX [Concomitant]
  4. CLONOPIN [Concomitant]

REACTIONS (1)
  - PAIN IN EXTREMITY [None]
